FAERS Safety Report 4862194-3 (Version None)
Quarter: 2005Q4

REPORT INFORMATION
  Report Type: 
  Country: None (occurrence: None)
  Receive Date: 20051130
  Receipt Date: 20050727
  Transmission Date: 20060501
  Serious: No
  Sender: FDA-Public Use
  Company Number: A03200502284

PATIENT

DRUGS (1)
  1. ELOXATIN [Suspect]

REACTIONS (4)
  - HYPERSENSITIVITY [None]
  - NEUROPATHY [None]
  - PRURITUS [None]
  - RASH [None]
